FAERS Safety Report 4326439-0 (Version None)
Quarter: 2004Q1

REPORT INFORMATION
  Report Type: 
  Country: None (occurrence: None)
  Receive Date: 20040330
  Receipt Date: 20011217
  Transmission Date: 20041129
  Serious: Yes (Hospitalization)
  Sender: FDA-Public Use
  Company Number: 200122083FR

PATIENT
  Sex: Female

DRUGS (2)
  1. ARAVA [Suspect]
     Indication: RHEUMATOID ARTHRITIS
     Route: 048
     Dates: start: 20011117, end: 20011203
  2. ZOLPIDEM TARTRATE [Concomitant]
     Route: 048
     Dates: start: 20011201

REACTIONS (6)
  - ATAXIA [None]
  - GUILLAIN-BARRE SYNDROME [None]
  - HEPATIC ENZYME INCREASED [None]
  - HYPOAESTHESIA [None]
  - PARAESTHESIA [None]
  - POLYNEUROPATHY [None]
